FAERS Safety Report 5769485-2 (Version None)
Quarter: 2008Q2

REPORT INFORMATION
  Report Type: 
  Country: None (occurrence: None)
  Receive Date: 20080612
  Receipt Date: 20080401
  Transmission Date: 20081010
  Serious: No
  Sender: FDA-Public Use
  Company Number: US-ABBOTT-08P-163-0444907-00

PATIENT
  Sex: Female
  Weight: 62.198 kg

DRUGS (5)
  1. HUMIRA [Suspect]
     Indication: RHEUMATOID ARTHRITIS
     Route: 058
     Dates: start: 20080401
  2. CADUET [Concomitant]
     Indication: BLOOD PRESSURE
  3. CADUET [Concomitant]
     Indication: BLOOD CHOLESTEROL
  4. FOLIC ACID [Concomitant]
     Indication: RHEUMATOID ARTHRITIS
  5. METHOTREXATE [Concomitant]
     Indication: RHEUMATOID ARTHRITIS

REACTIONS (2)
  - CHEST DISCOMFORT [None]
  - SALIVA ALTERED [None]
